FAERS Safety Report 25172810 (Version 3)
Quarter: 2025Q4

REPORT INFORMATION
  Report Type: Report from Study
  Country: EU (occurrence: EU)
  Receive Date: 20250408
  Receipt Date: 20251128
  Transmission Date: 20260118
  Serious: Yes (Death, Hospitalization, Other)
  Sender: NOVARTIS
  Company Number: EU-002147023-NVSC2025DE056550

PATIENT
  Age: 79 Year
  Sex: Male
  Weight: 85 kg

DRUGS (4)
  1. COSENTYX [Suspect]
     Active Substance: SECUKINUMAB
     Indication: Psoriatic arthropathy
     Dosage: 150 MG
     Route: 058
     Dates: start: 20230203, end: 20230206
  2. COSENTYX [Suspect]
     Active Substance: SECUKINUMAB
     Dosage: 150 MG (2 WKS. ON 4 D/WK)
     Route: 058
     Dates: start: 20230206
  3. TAZOBACTAM [Concomitant]
     Active Substance: TAZOBACTAM
     Indication: Product used for unknown indication
     Dosage: UNK
     Route: 065
  4. PIPERACILLIN [Concomitant]
     Active Substance: PIPERACILLIN
     Indication: Product used for unknown indication
     Dosage: UNK
     Route: 065

REACTIONS (22)
  - Septic shock [Fatal]
  - Blood pressure decreased [Fatal]
  - Haemodynamic instability [Fatal]
  - Hypothermia [Fatal]
  - Pneumonia [Fatal]
  - Disturbance in attention [Fatal]
  - Aphasia [Fatal]
  - Staphylococcal bacteraemia [Fatal]
  - Metabolic acidosis [Fatal]
  - Hypernatraemia [Fatal]
  - Heparin-induced thrombocytopenia [Fatal]
  - Condition aggravated [Fatal]
  - General physical health deterioration [Unknown]
  - Dyspnoea [Unknown]
  - Asthenia [Unknown]
  - Dysarthria [Unknown]
  - Immune thrombocytopenia [Unknown]
  - Psoriasis [Unknown]
  - Erythema [Unknown]
  - Skin exfoliation [Unknown]
  - Tongue dry [Unknown]
  - Rheumatoid arthritis [Unknown]

NARRATIVE: CASE EVENT DATE: 20230924
